FAERS Safety Report 16947849 (Version 1)
Quarter: 2019Q4

REPORT INFORMATION
  Report Type: Spontaneous
  Country: US (occurrence: US)
  Receive Date: 20191022
  Receipt Date: 20191022
  Transmission Date: 20200122
  Serious: Yes (Other)
  Sender: FDA-Public Use
  Company Number: US-ROCHE-2438304

PATIENT
  Age: 71 Year
  Sex: Male

DRUGS (1)
  1. OCREVUS [Suspect]
     Active Substance: OCRELIZUMAB
     Indication: PRIMARY PROGRESSIVE MULTIPLE SCLEROSIS
     Dosage: ONGOING : UNKNOWN
     Route: 065
     Dates: start: 201705

REACTIONS (3)
  - Fatigue [Unknown]
  - Squamous cell carcinoma [Unknown]
  - Weight decreased [Unknown]

NARRATIVE: CASE EVENT DATE: 201908
